FAERS Safety Report 4318893-5 (Version None)
Quarter: 2004Q1

REPORT INFORMATION
  Report Type: 
  Country: None (occurrence: None)
  Receive Date: 20040315
  Receipt Date: 20040303
  Transmission Date: 20041129
  Serious: Yes (Death, Hospitalization, Other)
  Sender: FDA-Public Use
  Company Number: 2004001852

PATIENT
  Sex: Male

DRUGS (7)
  1. TIKOSYN [Suspect]
     Indication: ILL-DEFINED DISORDER
     Dosage: 1000 MCG (BID), ORAL
     Route: 048
     Dates: end: 20040227
  2. WARFARIN SODIUM [Concomitant]
  3. BUMETANIDE [Concomitant]
  4. METOLAZONE [Concomitant]
  5. DIGOXIN [Concomitant]
  6. FLUOXETINE HCL [Concomitant]
  7. LISINOPRIL [Concomitant]

REACTIONS (2)
  - ORGAN FAILURE [None]
  - RENAL IMPAIRMENT [None]
